FAERS Safety Report 7804001-2 (Version None)
Quarter: 2011Q4

REPORT INFORMATION
  Report Type: 
  Country: None (occurrence: None)
  Receive Date: 20111010
  Receipt Date: 20110928
  Transmission Date: 20120403
  Serious: Yes (Other)
  Sender: FDA-Public Use
  Company Number: PT-JNJFOC-20110911842

PATIENT
  Age: 57 Year
  Sex: Male
  Weight: 61 kg

DRUGS (1)
  1. REMICADE [Suspect]
     Indication: ANKYLOSING SPONDYLITIS
     Route: 042
     Dates: start: 20100326

REACTIONS (3)
  - TOXIC SKIN ERUPTION [None]
  - OEDEMA [None]
  - HYPERSENSITIVITY [None]
